FAERS Safety Report 21657367 (Version 5)
Quarter: 2023Q1

REPORT INFORMATION
  Report Type: Report from Study
  Country: TR (occurrence: None)
  Receive Date: 20221129
  Receipt Date: 20230302
  Transmission Date: 20230417
  Serious: Yes (Hospitalization)
  Sender: FDA-Public Use
  Company Number: TR-Eisai Medical Research-EC-2022-128814

PATIENT
  Age: 50 Year
  Sex: Male
  Weight: 81.2 kg

DRUGS (22)
  1. LENVATINIB [Suspect]
     Active Substance: LENVATINIB
     Indication: Clear cell renal cell carcinoma
     Route: 048
     Dates: start: 20220208
  2. PEMBROLIZUMAB [Suspect]
     Active Substance: PEMBROLIZUMAB
     Indication: Clear cell renal cell carcinoma
     Route: 041
     Dates: start: 20220208, end: 20220803
  3. PEMBROLIZUMAB [Suspect]
     Active Substance: PEMBROLIZUMAB
     Route: 041
     Dates: start: 20220914
  4. ASPIRIN [Concomitant]
     Active Substance: ASPIRIN
     Dates: start: 20200620
  5. IBUPROFEN [Concomitant]
     Active Substance: IBUPROFEN
     Dates: start: 20200620
  6. FLURBIPROFEN [Concomitant]
     Active Substance: FLURBIPROFEN
     Dates: start: 20220222
  7. INDAPAMIDE\PERINDOPRIL ARGININE [Concomitant]
     Active Substance: INDAPAMIDE\PERINDOPRIL ARGININE
     Dates: start: 20200620
  8. TRAMADOL HYDROCHLORIDE [Concomitant]
     Active Substance: TRAMADOL HYDROCHLORIDE
     Dates: start: 20220222
  9. KLOROBEN [Concomitant]
     Dates: start: 20220222
  10. DEXKETOPROFEN [Concomitant]
     Active Substance: DEXKETOPROFEN
     Dates: start: 20220315
  11. BUTEFIN [Concomitant]
     Dates: start: 20220315
  12. NORVASC [Concomitant]
     Active Substance: AMLODIPINE BESYLATE
     Dates: start: 20220531
  13. LEVOTHYROXINE SODIUM [Concomitant]
     Active Substance: LEVOTHYROXINE SODIUM
     Dates: start: 20220722, end: 20221006
  14. PRATIN [PRAVASTATIN SODIUM] [Concomitant]
     Dates: start: 201901
  15. DILOXOL [Concomitant]
     Dates: start: 201901
  16. ALFUTU [Concomitant]
     Dates: start: 20220415
  17. BUTYLSCOPOLAMINE BROMIDE [Concomitant]
     Active Substance: BUTYLSCOPOLAMINE BROMIDE
     Dates: start: 20220819, end: 20220829
  18. DENFLOR [Concomitant]
     Dates: start: 20220819, end: 20220829
  19. FLAGYL [Concomitant]
     Active Substance: METRONIDAZOLE\METRONIDAZOLE HYDROCHLORIDE
     Dates: start: 20220819, end: 20220829
  20. DRAMAMINE [Concomitant]
     Active Substance: DIMENHYDRINATE
     Dates: start: 20220819, end: 20220829
  21. DIAFURYL [Concomitant]
     Dates: start: 20220819, end: 20220829
  22. PRABEX [Concomitant]
     Dates: start: 20220819, end: 20220829

REACTIONS (1)
  - Nausea [Recovered/Resolved]

NARRATIVE: CASE EVENT DATE: 20220907
